FAERS Safety Report 8783512 (Version 1)
Quarter: 2012Q4

REPORT INFORMATION
  Report Type: 
  Country: GB (occurrence: GB)
  Receive Date: 20120913
  Receipt Date: 20120913
  Transmission Date: 20130627
  Serious: Yes (Disabling)
  Sender: FDA-Public Use
  Company Number: PHHY2012GB079058

PATIENT
  Age: 61 Year
  Sex: Male
  Weight: 65 kg

DRUGS (1)
  1. TAMSULOSIN [Suspect]
     Indication: BENIGN PROSTATIC HYPERPLASIA
     Dosage: 400 ug, daily
     Route: 048

REACTIONS (2)
  - Fracture of penis [Not Recovered/Not Resolved]
  - Rhinitis [Not Recovered/Not Resolved]
